FAERS Safety Report 9796200 (Version 2)
Quarter: 2014Q1

REPORT INFORMATION
  Report Type: Spontaneous
  Country: US (occurrence: US)
  Receive Date: 20140103
  Receipt Date: 20140108
  Transmission Date: 20141002
  Serious: No
  Sender: FDA-Public Use
  Company Number: US-009507513-1312USA012272

PATIENT
  Age: 47 Year
  Sex: Female

DRUGS (4)
  1. NASONEX [Suspect]
     Dosage: 2 SPRAYS IN EACH NOSTRIL ONCE A DAY
     Route: 045
     Dates: start: 201011
  2. BACLOFEN [Concomitant]
  3. MELOXICAM [Concomitant]
  4. ASTEPRO [Concomitant]

REACTIONS (2)
  - Nasal discomfort [Recovering/Resolving]
  - Product quality issue [Unknown]
